FAERS Safety Report 20941929 (Version 2)
Quarter: 2022Q3

REPORT INFORMATION
  Report Type: Spontaneous
  Country: US (occurrence: US)
  Receive Date: 20220610
  Receipt Date: 20220701
  Transmission Date: 20221027
  Serious: Yes (Hospitalization, Other)
  Sender: FDA-Public Use
  Company Number: US-UNITED THERAPEUTICS-UNT-2022-009075

PATIENT
  Sex: Male
  Weight: 77.098 kg

DRUGS (4)
  1. REMODULIN [Suspect]
     Active Substance: TREPROSTINIL
     Indication: Pulmonary arterial hypertension
     Dosage: UNK, CONTINUING
     Route: 041
     Dates: start: 20220217
  2. REMODULIN [Suspect]
     Active Substance: TREPROSTINIL
     Dosage: 0.0524 ?G/KG, CONTINUING
     Route: 041
  3. OPSUMIT [Suspect]
     Active Substance: MACITENTAN
     Indication: Product used for unknown indication
     Dosage: UNK
     Route: 048
     Dates: end: 202205
  4. ELIQUIS [Concomitant]
     Active Substance: APIXABAN
     Indication: Product used for unknown indication
     Dosage: UNK
     Route: 065

REACTIONS (5)
  - Abdominal pain [Unknown]
  - Cholecystitis [Unknown]
  - Gallbladder abscess [Unknown]
  - Weight decreased [Unknown]
  - Dizziness postural [Unknown]

NARRATIVE: CASE EVENT DATE: 20220101
